FAERS Safety Report 6816625-X (Version None)
Quarter: 2010Q3

REPORT INFORMATION
  Report Type: 
  Country: None (occurrence: None)
  Receive Date: 20100706
  Receipt Date: 20100622
  Transmission Date: 20110219
  Serious: Yes (Other)
  Sender: FDA-Public Use
  Company Number: US-JNJFOC-20100503810

PATIENT
  Age: 14 Month
  Sex: Male
  Weight: 11.79 kg

DRUGS (6)
  1. CONCENTRATED MOTRIN INFANTS DROPS [Suspect]
     Route: 048
  2. CONCENTRATED MOTRIN INFANTS DROPS [Suspect]
     Indication: PYREXIA
     Dosage: TOP LINE OF DROPPER EVERY 4 HOURS
     Route: 048
  3. CHILDREN'S TYLENOL SUSPENSION [Suspect]
     Route: 048
  4. CHILDREN'S TYLENOL SUSPENSION [Suspect]
     Indication: PYREXIA
     Route: 048
  5. FLOVENT [Concomitant]
     Indication: ASTHMA
     Dosage: 2 PUFFS TWICE A DAY FOR A YEAR
     Route: 055
  6. COMBIVENT [Concomitant]
     Indication: ASTHMA
     Dosage: 4 PUFFS AS NEEDED FOR A YEAR
     Route: 055

REACTIONS (2)
  - PNEUMONIA [None]
  - PRODUCT QUALITY ISSUE [None]
